FAERS Safety Report 15565786 (Version 1)
Quarter: 2018Q4

REPORT INFORMATION
  Report Type: Spontaneous
  Country: US (occurrence: US)
  Receive Date: 20181025
  Receipt Date: 20181025
  Transmission Date: 20190205
  Serious: No
  Sender: FDA-Public Use
  Company Number: None

PATIENT
  Age: 76 Year
  Sex: Female
  Weight: 54.43 kg

DRUGS (7)
  1. ACIPHEX [Concomitant]
     Active Substance: RABEPRAZOLE SODIUM
  2. RHOPRESSA [Suspect]
     Active Substance: NETARSUDIL MESYLATE
     Indication: GLAUCOMA
     Dosage: ?          QUANTITY:1 GTT DROP(S);?
     Dates: start: 20180705, end: 20180706
  3. CRANBERRY EXTRACT [Concomitant]
     Active Substance: CRANBERRY JUICE
  4. CITRACAL [Concomitant]
     Active Substance: CALCIUM CITRATE
  5. VITAMIN C [Concomitant]
     Active Substance: ASCORBIC ACID
  6. GLUCOSAMINE-CHONDROITIN [Concomitant]
     Active Substance: CHONDROITIN SULFATE (BOVINE)\GLUCOSAMINE SULFATE
  7. COQ 10 [Concomitant]
     Active Substance: UBIDECARENONE

REACTIONS (6)
  - Sneezing [None]
  - Respiratory tract congestion [None]
  - Dyspnoea [None]
  - Instillation site erythema [None]
  - Pharyngeal disorder [None]
  - Rhinorrhoea [None]

NARRATIVE: CASE EVENT DATE: 20180705
